FAERS Safety Report 8480381-2 (Version None)
Quarter: 2012Q3

REPORT INFORMATION
  Report Type: 
  Country: None (occurrence: None)
  Receive Date: 20120702
  Receipt Date: 20120627
  Transmission Date: 20120928
  Serious: Yes (Other)
  Sender: FDA-Public Use
  Company Number: US-ROCHE-1082610

PATIENT

DRUGS (3)
  1. OMNICEF [Concomitant]
     Route: 048
     Dates: start: 20111111
  2. XOLAIR [Suspect]
     Indication: PRODUCT USED FOR UNKNOWN INDICATION
  3. AUGMENTIN '125' [Concomitant]
     Route: 048
     Dates: start: 20111227

REACTIONS (1)
  - BRONCHOSPASM [None]
